FAERS Safety Report 4894273-9 (Version None)
Quarter: 2006Q1

REPORT INFORMATION
  Report Type: 
  Country: None (occurrence: None)
  Receive Date: 20060127
  Receipt Date: 20060118
  Transmission Date: 20060701
  Serious: Yes (Hospitalization, Disabling)
  Sender: FDA-Public Use
  Company Number: US-MERCK-0601USA01935

PATIENT
  Age: 62 Year
  Sex: Female
  Weight: 93 kg

DRUGS (18)
  1. ZOCOR [Suspect]
     Indication: BLOOD CHOLESTEROL INCREASED
     Route: 048
     Dates: start: 20040320, end: 20051019
  2. ZOCOR [Suspect]
     Route: 048
     Dates: start: 20051224
  3. BUMEX [Suspect]
     Route: 048
  4. HYDRALAZINE [Concomitant]
     Route: 048
  5. DILTIAZEM HYDROCHLORIDE [Concomitant]
     Route: 048
  6. CATAPRES [Concomitant]
     Route: 065
  7. ASPIRIN [Concomitant]
     Route: 048
  8. NITROGLYCERIN [Concomitant]
     Route: 065
  9. TYLENOL-500 [Concomitant]
     Route: 048
  10. EPIPEN [Concomitant]
     Indication: ANAPHYLACTIC REACTION
     Route: 065
  11. RELAFEN [Concomitant]
     Route: 048
  12. ALBUTEROL [Concomitant]
     Indication: DYSPNOEA
     Route: 055
  13. ALBUTEROL [Concomitant]
     Indication: WHEEZING
     Route: 055
  14. ARANESP [Concomitant]
     Route: 065
  15. PHOSLO [Concomitant]
     Route: 048
  16. LANTUS [Concomitant]
     Route: 058
  17. HUMALOG [Concomitant]
     Route: 058
  18. METOPROLOL [Concomitant]
     Route: 065
     Dates: end: 20051221

REACTIONS (14)
  - BLOOD CREATINE PHOSPHOKINASE INCREASED [None]
  - BLOOD GLUCOSE INCREASED [None]
  - CARDIAC FAILURE CONGESTIVE [None]
  - CONDITION AGGRAVATED [None]
  - DRUG HYPERSENSITIVITY [None]
  - EYE OEDEMA [None]
  - FACE OEDEMA [None]
  - HYPERTENSION [None]
  - MITRAL VALVE INCOMPETENCE [None]
  - OEDEMA PERIPHERAL [None]
  - PALPITATIONS [None]
  - RED BLOOD CELL SEDIMENTATION RATE ABNORMAL [None]
  - TRICUSPID VALVE INCOMPETENCE [None]
  - WEIGHT INCREASED [None]
